FAERS Safety Report 22596121 (Version 1)
Quarter: 2023Q2

REPORT INFORMATION
  Report Type: Spontaneous
  Country: US (occurrence: None)
  Receive Date: 20230612
  Receipt Date: 20230612
  Transmission Date: 20230721
  Serious: No
  Sender: FDA-Public Use
  Company Number: None

PATIENT
  Age: 80 Year
  Sex: Female
  Weight: 60.33 kg

DRUGS (9)
  1. SCEMBLIX [Suspect]
     Active Substance: ASCIMINIB HYDROCHLORIDE
     Indication: Myeloid leukaemia
     Dosage: FREQUENCY : DAILY;?
     Route: 048
  2. AMLODIPINE [Concomitant]
  3. BACLOFEN [Concomitant]
     Active Substance: BACLOFEN
  4. CALCIUM [Concomitant]
  5. CEPHALEXIN [Concomitant]
  6. COREG [Concomitant]
     Active Substance: CARVEDILOL
  7. FOLIC ACID [Concomitant]
     Active Substance: FOLIC ACID
  8. MULTIVITAMINS [Concomitant]
  9. VITAMIN B12 [Concomitant]
     Active Substance: CYANOCOBALAMIN

REACTIONS (4)
  - Urinary tract infection [None]
  - Dysphagia [None]
  - Dyspnoea [None]
  - Tardive dyskinesia [None]
